FAERS Safety Report 13228207 (Version 1)
Quarter: 2017Q1

REPORT INFORMATION
  Report Type: Spontaneous
  Country: US (occurrence: US)
  Receive Date: 20170213
  Receipt Date: 20170213
  Transmission Date: 20170428
  Serious: Yes (Other)
  Sender: FDA-Public Use
  Company Number: US-BEH-2017077987

PATIENT
  Age: 27 Year
  Sex: Male
  Weight: 124.72 kg

DRUGS (13)
  1. EPIPEN [Concomitant]
     Active Substance: EPINEPHRINE
  2. NAPROXEN. [Concomitant]
     Active Substance: NAPROXEN
  3. ADVAIR HFA [Concomitant]
     Active Substance: FLUTICASONE PROPIONATE\SALMETEROL XINAFOATE
  4. HIZENTRA [Suspect]
     Active Substance: HUMAN IMMUNOGLOBULIN G
     Indication: IMMUNODEFICIENCY COMMON VARIABLE
     Dosage: 25 G, UNK
     Route: 058
     Dates: start: 20161221
  5. AMBIEN [Concomitant]
     Active Substance: ZOLPIDEM TARTRATE
  6. TIZANIDINE. [Concomitant]
     Active Substance: TIZANIDINE
  7. ACETAMINOPHEN. [Concomitant]
     Active Substance: ACETAMINOPHEN
  8. DIPHENHYDRAMINE. [Concomitant]
     Active Substance: DIPHENHYDRAMINE
  9. HYDROCODONE BITARTRATE AND ACETAMINOPHEN [Concomitant]
     Active Substance: ACETAMINOPHEN\HYDROCODONE BITARTRATE
  10. HIZENTRA [Suspect]
     Active Substance: HUMAN IMMUNOGLOBULIN G
     Dosage: UNK
     Route: 058
  11. MORPHINE [Concomitant]
     Active Substance: MORPHINE
  12. HIZENTRA [Suspect]
     Active Substance: HUMAN IMMUNOGLOBULIN G
     Dosage: UNK
     Route: 058
  13. HIZENTRA [Suspect]
     Active Substance: HUMAN IMMUNOGLOBULIN G
     Dosage: 25 G, QOW
     Route: 058
     Dates: start: 20170207

REACTIONS (2)
  - Cellulitis [Unknown]
  - Swelling [Unknown]

NARRATIVE: CASE EVENT DATE: 20160209
